FAERS Safety Report 5815547-0 (Version None)
Quarter: 2008Q3

REPORT INFORMATION
  Report Type: 
  Country: None (occurrence: None)
  Receive Date: 20080718
  Receipt Date: 20080710
  Transmission Date: 20090109
  Serious: Yes (Hospitalization, Other)
  Sender: FDA-Public Use
  Company Number: CA-PFIZER INC-2008057916

PATIENT
  Age: 34 Year
  Sex: Female

DRUGS (4)
  1. CELEBREX [Suspect]
     Indication: BACK PAIN
     Route: 048
  2. ESTROGENIC SUBSTANCE [Suspect]
     Route: 062
  3. ESTROGENIC SUBSTANCE [Suspect]
     Route: 048
  4. AMITRIPTYLINE HCL [Concomitant]
     Route: 048

REACTIONS (4)
  - DERMATITIS [None]
  - RASH MACULAR [None]
  - RESPIRATORY DISTRESS [None]
  - URTICARIA [None]
